FAERS Safety Report 14586530 (Version 1)
Quarter: 2018Q1

REPORT INFORMATION
  Report Type: Spontaneous
  Country: US (occurrence: US)
  Receive Date: 20180301
  Receipt Date: 20180301
  Transmission Date: 20180509
  Serious: No
  Sender: FDA-Public Use
  Company Number: US-SHIRE-US201807831

PATIENT
  Sex: Female

DRUGS (1)
  1. XIIDRA [Suspect]
     Active Substance: LIFITEGRAST
     Indication: PRODUCT USED FOR UNKNOWN INDICATION
     Dosage: 5 %, 2X/DAY:BID
     Route: 065
     Dates: end: 20180209

REACTIONS (7)
  - Hypersensitivity [Unknown]
  - Swelling face [Unknown]
  - Sinusitis [Unknown]
  - Lacrimation increased [Unknown]
  - Skin oedema [Unknown]
  - Instillation site pain [Unknown]
  - Eye pruritus [Unknown]
